FAERS Safety Report 13705846 (Version 1)
Quarter: 2017Q2

REPORT INFORMATION
  Report Type: Spontaneous
  Country: IT (occurrence: IT)
  Receive Date: 20170630
  Receipt Date: 20170630
  Transmission Date: 20170830
  Serious: Yes (Other)
  Sender: FDA-Public Use
  Company Number: IT-HQ SPECIALTY-IT-2017INT000229

PATIENT

DRUGS (6)
  1. CAELYX [Suspect]
     Active Substance: DOXORUBICIN HYDROCHLORIDE
     Indication: UTERINE CANCER
  2. CAELYX [Suspect]
     Active Substance: DOXORUBICIN HYDROCHLORIDE
     Indication: OVARIAN CANCER METASTATIC
     Dosage: UNK, 5 COURSES
  3. CARBOPLATINUM [Suspect]
     Active Substance: CARBOPLATIN
     Indication: OVARIAN CANCER METASTATIC
     Dosage: UNK, 5 COURSES
  4. TAXOL [Suspect]
     Active Substance: PACLITAXEL
     Indication: UTERINE CANCER
  5. TAXOL [Suspect]
     Active Substance: PACLITAXEL
     Indication: OVARIAN CANCER METASTATIC
     Dosage: UNK, 5 COURSES
  6. CARBOPLATINUM [Suspect]
     Active Substance: CARBOPLATIN
     Indication: UTERINE CANCER

REACTIONS (1)
  - Gastritis erosive [Unknown]
